FAERS Safety Report 5252687-1 (Version None)
Quarter: 2007Q1

REPORT INFORMATION
  Report Type: 
  Country: None (occurrence: None)
  Receive Date: 20070301
  Receipt Date: 20061109
  Transmission Date: 20070707
  Serious: No
  Sender: FDA-Public Use
  Company Number: US-GLAXOSMITHKLINE-A0626881A

PATIENT
  Age: 51 Year
  Sex: Male

DRUGS (5)
  1. LAMICTAL [Suspect]
     Indication: BIPOLAR DISORDER
     Route: 048
  2. PAROXETINE HCL [Concomitant]
  3. ALPRAZOLAM [Concomitant]
  4. AMBIEN [Concomitant]
  5. SEROQUEL [Concomitant]

REACTIONS (1)
  - RASH [None]
